FAERS Safety Report 8816637 (Version 1)
Quarter: 2012Q4

REPORT INFORMATION
  Report Type: Spontaneous
  Country: DE (occurrence: None)
  Receive Date: 20120928
  Receipt Date: 20120928
  Transmission Date: 20130627
  Serious: Yes (Other)
  Sender: FDA-Public Use
  Company Number: GER/GER/12/0026016

PATIENT
  Age: 37 Year
  Sex: Female

DRUGS (9)
  1. VENLAFAXINE [Suspect]
     Indication: DEPRESSION
     Dosage: 27. - 35. gestational week
gestationl week: 27
  2. VENLAFAXINE [Suspect]
     Indication: DEPRESSION
     Dosage: gestational week:  22-35
  3. OLANZAPIN [Suspect]
     Dosage: 27. - 35. gestational week
  4. LITHIUM [Suspect]
     Route: 048
  5. LITHIUM [Suspect]
     Route: 048
  6. LITHIUM [Suspect]
     Route: 048
  7. LITHIUM [Suspect]
     Route: 048
  8. SERTRALINE (SERTRALINE) (SERTRALINE) [Concomitant]
  9. FOLIC  (FOLIC ACID) [Concomitant]

REACTIONS (5)
  - Foetal death [None]
  - Stillbirth [None]
  - Gastroenteritis norovirus [None]
  - Placental disorder [None]
  - Exposure during pregnancy [None]
